FAERS Safety Report 5493401-4 (Version None)
Quarter: 2007Q4

REPORT INFORMATION
  Report Type: 
  Country: None (occurrence: None)
  Receive Date: 20071023
  Receipt Date: 20071010
  Transmission Date: 20080405
  Serious: Yes (Hospitalization)
  Sender: FDA-Public Use
  Company Number: US-ELI_LILLY_AND_COMPANY-US200710002765

PATIENT
  Sex: Male

DRUGS (9)
  1. CYMBALTA [Suspect]
     Indication: NEURALGIA
     Dosage: 30 MG, DAILY (1/D)
     Dates: start: 20070807
  2. CYMBALTA [Suspect]
     Dosage: 60 MG, DAILY (1/D)
     Dates: start: 20070814
  3. CYMBALTA [Suspect]
     Dosage: 60 MG, DAILY (1/D)
     Dates: start: 20071005
  4. BENICAR [Concomitant]
     Indication: BLOOD PRESSURE
     Dosage: 40 MG, DAILY (1/D)
  5. ALTACE [Concomitant]
     Indication: BLOOD PRESSURE
     Dosage: 10 MG, AS NEEDED
  6. AGGRENOX [Concomitant]
  7. DILAUDID [Concomitant]
     Indication: PAIN
  8. VELCADE [Concomitant]
     Indication: MULTIPLE MYELOMA
  9. LYRICA [Concomitant]
     Indication: NEURALGIA
     Dates: start: 20070101

REACTIONS (6)
  - BLOOD PRESSURE INCREASED [None]
  - FALL [None]
  - HALLUCINATION [None]
  - HEAD INJURY [None]
  - HEADACHE [None]
  - MUSCLE SPASMS [None]
